FAERS Safety Report 14929255 (Version 1)
Quarter: 2018Q2

REPORT INFORMATION
  Report Type: Spontaneous
  Country: KR (occurrence: KR)
  Receive Date: 20180523
  Receipt Date: 20180523
  Transmission Date: 20180711
  Serious: Yes (Other)
  Sender: FDA-Public Use
  Company Number: KR-BAYER-2018-094810

PATIENT
  Age: 32 Year
  Sex: Female

DRUGS (4)
  1. YAZ [Suspect]
     Active Substance: DROSPIRENONE\ETHINYL ESTRADIOL
     Dosage: 1 DF, QD
     Route: 048
     Dates: start: 200907, end: 200912
  2. YASMIN [Suspect]
     Active Substance: DROSPIRENONE\ETHINYL ESTRADIOL
     Dosage: UNK
     Route: 048
     Dates: start: 20090324, end: 20090414
  3. VISANNE [Suspect]
     Active Substance: DIENOGEST
     Dosage: 2 MG, QD
     Route: 048
     Dates: start: 201303, end: 201409
  4. MYVLAR [Suspect]
     Active Substance: ETHINYL ESTRADIOL\GESTODENE
     Dosage: UNK
     Route: 048
     Dates: start: 200904, end: 200904

REACTIONS (10)
  - Pruritus [None]
  - Off label use [None]
  - Uterine leiomyoma [None]
  - Hypersensitivity vasculitis [None]
  - Dysmenorrhoea [None]
  - Ovarian cyst [None]
  - Product use in unapproved indication [None]
  - Maternal exposure before pregnancy [None]
  - Urticaria [None]
  - Abortion early [None]

NARRATIVE: CASE EVENT DATE: 200904
